FAERS Safety Report 25671714 (Version 2)
Quarter: 2025Q3

REPORT INFORMATION
  Report Type: Spontaneous
  Country: EU (occurrence: EU)
  Receive Date: 20250812
  Receipt Date: 20250911
  Transmission Date: 20251021
  Serious: Yes (Other)
  Sender: VERTEX
  Company Number: None

PATIENT
  Age: 45 Year
  Sex: Female

DRUGS (2)
  1. ELEXACAFTOR\IVACAFTOR\TEZACAFTOR [Suspect]
     Active Substance: ELEXACAFTOR\IVACAFTOR\TEZACAFTOR
     Indication: Cystic fibrosis
     Dosage: 2 TABS IN AM (75MG IVA/ 50MG TEZA / 100MG ELEXA)
     Route: 048
     Dates: start: 20250401
  2. KALYDECO [Suspect]
     Active Substance: IVACAFTOR
     Indication: Cystic fibrosis
     Dosage: 1 TAB IN PM
     Route: 048
     Dates: start: 20250401

REACTIONS (13)
  - Diarrhoea [Recovered/Resolved]
  - Rash papular [Recovered/Resolved]
  - Abdominal pain [Recovered/Resolved]
  - Tension headache [Recovered/Resolved]
  - Transaminases increased [Unknown]
  - Vasculitis [Recovered/Resolved]
  - Lymphadenopathy [Recovered/Resolved]
  - Blepharitis [Recovered/Resolved]
  - Parotid gland enlargement [Recovered/Resolved]
  - Muscle spasms [Not Recovered/Not Resolved]
  - Muscle contractions involuntary [Recovering/Resolving]
  - Cough [Recovered/Resolved]
  - Oropharyngeal pain [Recovered/Resolved]

NARRATIVE: CASE EVENT DATE: 20250401
